FAERS Safety Report 6232744-3 (Version None)
Quarter: 2009Q2

REPORT INFORMATION
  Report Type: 
  Country: None (occurrence: None)
  Receive Date: 20090612
  Receipt Date: 20090612
  Transmission Date: 20091009
  Serious: Yes (Life-Threatening, Hospitalization)
  Sender: FDA-Public Use
  Company Number: None

PATIENT
  Sex: Male
  Weight: 81.6475 kg

DRUGS (11)
  1. ATRIPLA [Suspect]
     Indication: HIV INFECTION
     Dates: start: 20081103, end: 20090515
  2. ZYPREXA [Concomitant]
  3. DEPAKOTE [Concomitant]
  4. DILANTIN [Concomitant]
  5. ATENOLOL [Concomitant]
  6. REMERON [Concomitant]
  7. CLONAZEPAM [Concomitant]
  8. SEROQUEL [Concomitant]
  9. BUSPAR [Concomitant]
  10. XOPENEX [Concomitant]
  11. ATRIPLA [Concomitant]

REACTIONS (1)
  - CONVULSION [None]
